FAERS Safety Report 9528204 (Version 1)
Quarter: 2013Q1

REPORT INFORMATION
  Report Type: Spontaneous
  Country: US (occurrence: None)
  Receive Date: 20130322
  Receipt Date: 20130322
  Transmission Date: 20140127
  Serious: Yes (Hospitalization, Other)
  Sender: FDA-Public Use
  Company Number: PHEH2012US007513

PATIENT
  Age: 71 Year
  Sex: Male
  Weight: 122 kg

DRUGS (1)
  1. NEORAL [Suspect]
     Indication: RENAL TRANSPLANT
     Dosage: 100 MG, BID, ORAL
     Route: 048
     Dates: start: 2001

REACTIONS (3)
  - Urosepsis [None]
  - Pneumonia [None]
  - Escherichia sepsis [None]
